FAERS Safety Report 25437647 (Version 1)
Quarter: 2025Q2

REPORT INFORMATION
  Report Type: Spontaneous
  Country: US (occurrence: US)
  Receive Date: 20250616
  Receipt Date: 20250616
  Transmission Date: 20250717
  Serious: No
  Sender: ROCHE
  Company Number: US-ROCHE-10000306113

PATIENT
  Sex: Male

DRUGS (4)
  1. ESBRIET [Suspect]
     Active Substance: PIRFENIDONE
     Indication: Interstitial lung disease
     Route: 048
     Dates: start: 202409
  2. LAMICTAL [Concomitant]
     Active Substance: LAMOTRIGINE
  3. ENALAPRIL [Concomitant]
     Active Substance: ENALAPRIL
  4. NUBEQA [Concomitant]
     Active Substance: DAROLUTAMIDE

REACTIONS (1)
  - Dysgeusia [Recovering/Resolving]
